FAERS Safety Report 8454116-3 (Version None)
Quarter: 2012Q2

REPORT INFORMATION
  Report Type: 
  Country: None (occurrence: None)
  Receive Date: 20120620
  Receipt Date: 20120618
  Transmission Date: 20120825
  Serious: No
  Sender: FDA-Public Use
  Company Number: US-PFIZER INC-2012146649

PATIENT
  Sex: Male
  Weight: 104 kg

DRUGS (3)
  1. CELEBREX [Suspect]
     Indication: INFLAMMATION
     Dosage: UNK, 1X/DAY
     Route: 048
     Dates: start: 20120601
  2. CELEBREX [Suspect]
     Indication: ARTHRALGIA
  3. NIACIN [Concomitant]
     Dosage: UNK

REACTIONS (1)
  - ABDOMINAL PAIN UPPER [None]
